FAERS Safety Report 18668004 (Version 1)
Quarter: 2020Q4

REPORT INFORMATION
  Report Type: Spontaneous
  Country: GB (occurrence: GB)
  Receive Date: 20201228
  Receipt Date: 20201228
  Transmission Date: 20210114
  Serious: Yes (Other)
  Sender: FDA-Public Use
  Company Number: GB-JNJFOC-20201245866

PATIENT
  Age: 33 Year
  Sex: Male

DRUGS (4)
  1. TREVICTA [Suspect]
     Active Substance: PALIPERIDONE PALMITATE
  2. RISPERIDONE. [Concomitant]
     Active Substance: RISPERIDONE
     Route: 065
  3. TREVICTA [Suspect]
     Active Substance: PALIPERIDONE PALMITATE
     Indication: SCHIZOPHRENIA
     Route: 030
     Dates: start: 201709, end: 201812
  4. TREVICTA [Suspect]
     Active Substance: PALIPERIDONE PALMITATE

REACTIONS (4)
  - Suicidal ideation [Unknown]
  - Hallucination, auditory [Unknown]
  - Bradykinesia [Unknown]
  - Schizophrenia [Unknown]

NARRATIVE: CASE EVENT DATE: 201811
